FAERS Safety Report 5832511-6 (Version None)
Quarter: 2008Q3

REPORT INFORMATION
  Report Type: 
  Country: None (occurrence: None)
  Receive Date: 20080730
  Receipt Date: 20080714
  Transmission Date: 20090109
  Serious: Yes (Hospitalization)
  Sender: FDA-Public Use
  Company Number: 2008BI015071

PATIENT
  Age: 68 Year
  Sex: Male
  Weight: 74 kg

DRUGS (5)
  1. AVONEX [Suspect]
     Indication: MULTIPLE SCLEROSIS
     Dosage: 30 UG;QW;IM
     Route: 030
     Dates: start: 20050919
  2. METOPROLOL SUCCINATE [Concomitant]
  3. EBASTEL [Concomitant]
  4. EZETROL [Concomitant]
  5. FRAGMIN [Concomitant]

REACTIONS (2)
  - ABSCESS SWEAT GLAND [None]
  - ANAL ABSCESS [None]
